FAERS Safety Report 18567446 (Version 1)
Quarter: 2020Q4

REPORT INFORMATION
  Report Type: Spontaneous
  Country: DE (occurrence: DE)
  Receive Date: 20201202
  Receipt Date: 20201202
  Transmission Date: 20210114
  Serious: Yes (Disabling, Other)
  Sender: FDA-Public Use
  Company Number: DE-PIRAMAL ENTERPRISES LIMITED-2020-PEL-000654

PATIENT

DRUGS (15)
  1. HALDOL [Suspect]
     Active Substance: HALOPERIDOL
     Indication: SURGERY
     Dosage: UNK
     Route: 065
  2. NOVAMIN                            /00013301/ [Suspect]
     Active Substance: PROCHLORPERAZINE
     Indication: PRODUCT USED FOR UNKNOWN INDICATION
     Dosage: UNK
     Route: 065
     Dates: start: 20190819
  3. MIVACURIUM [Suspect]
     Active Substance: MIVACURIUM
     Indication: SURGERY
     Dosage: 14 MILLIGRAM, 1 TOTAL
     Route: 065
     Dates: start: 20190819
  4. SEVOFLURANE. [Suspect]
     Active Substance: SEVOFLURANE
     Indication: SURGERY
     Dosage: 2.3%
     Route: 065
     Dates: start: 20190819, end: 20190819
  5. FENTANYL, UNKNOWN [Suspect]
     Active Substance: FENTANYL
     Indication: SURGERY
     Dosage: 0.2 MILLIGRAM, 1 TOTAL
     Route: 065
  6. PROPOFOL CLARIS [Suspect]
     Active Substance: PROPOFOL
     Indication: TONSILLECTOMY
     Dosage: UNK (FEMTOGRAM)
     Route: 065
     Dates: start: 20190819
  7. PROPOFOL CLARIS [Suspect]
     Active Substance: PROPOFOL
     Dosage: 300 MILLIGRAM, 1 TOTAL
     Route: 065
     Dates: start: 20190820, end: 20190820
  8. AMIKACIN SULFATE. [Suspect]
     Active Substance: AMIKACIN SULFATE
     Indication: PRODUCT USED FOR UNKNOWN INDICATION
     Dosage: 2500 UNK
     Route: 065
  9. DEXAMETHASONE. [Suspect]
     Active Substance: DEXAMETHASONE
     Indication: SURGERY
     Dosage: 8 MILLIGRAM, 1 TOTAL
     Route: 065
     Dates: start: 20190819
  10. NOVAMINSULFON [Concomitant]
     Active Substance: METAMIZOLE
     Indication: SURGERY
     Dosage: 2500 MILLIGRAM
     Route: 065
  11. PROPOFOL CLARIS [Suspect]
     Active Substance: PROPOFOL
     Indication: ANAESTHESIA
     Dosage: UNK
     Route: 065
     Dates: start: 20190820, end: 20190820
  12. DICLOFENAC [Suspect]
     Active Substance: DICLOFENAC
     Indication: SURGERY
     Dosage: 100 FEMTOGRAM
     Route: 065
     Dates: start: 20190818, end: 20190902
  13. DICLOFENAC [Suspect]
     Active Substance: DICLOFENAC
     Indication: PAIN
  14. PIRITRAMIDE, UNKNOWN [Suspect]
     Active Substance: PIRITRAMIDE
     Indication: SURGERY
     Dosage: 7.5 MILLIGRAM
     Route: 065
  15. ONDANSETRON [Suspect]
     Active Substance: ONDANSETRON
     Indication: SURGERY
     Dosage: 4 MILLIGRAM
     Route: 065
     Dates: start: 20190819

REACTIONS (24)
  - Vision blurred [Not Recovered/Not Resolved]
  - Asthenia [Not Recovered/Not Resolved]
  - Flatulence [Not Recovered/Not Resolved]
  - Oropharyngeal pain [Not Recovered/Not Resolved]
  - Impaired work ability [Not Recovered/Not Resolved]
  - Chest pain [Not Recovered/Not Resolved]
  - Asthenia [Unknown]
  - Off label use [Unknown]
  - Somnolence [Not Recovered/Not Resolved]
  - Dyspnoea [Not Recovered/Not Resolved]
  - Speech disorder [Not Recovered/Not Resolved]
  - Visual impairment [Not Recovered/Not Resolved]
  - Heart rate increased [Not Recovered/Not Resolved]
  - Chest discomfort [Not Recovered/Not Resolved]
  - Product use in unapproved indication [Unknown]
  - Oropharyngeal discomfort [Not Recovered/Not Resolved]
  - Performance status decreased [Not Recovered/Not Resolved]
  - Weight bearing difficulty [Not Recovered/Not Resolved]
  - Hyperventilation [Not Recovered/Not Resolved]
  - Blood pressure measurement [Not Recovered/Not Resolved]
  - Cardiovascular disorder [Not Recovered/Not Resolved]
  - General physical condition abnormal [Not Recovered/Not Resolved]
  - Nausea [Unknown]
  - Dizziness [Not Recovered/Not Resolved]

NARRATIVE: CASE EVENT DATE: 20190818
